FAERS Safety Report 22088958 (Version 4)
Quarter: 2023Q4

REPORT INFORMATION
  Report Type: Report from Study
  Country: DE (occurrence: DE)
  Receive Date: 20230313
  Receipt Date: 20231201
  Transmission Date: 20240110
  Serious: Yes (Other)
  Sender: FDA-Public Use
  Company Number: DE-002147023-NVSC2020DE154275

PATIENT
  Age: 66 Year
  Sex: Female
  Weight: 73 kg

DRUGS (13)
  1. LETROZOLE [Suspect]
     Active Substance: LETROZOLE
     Indication: Breast cancer metastatic
     Dosage: 2.5 MG, QD
     Route: 048
     Dates: start: 20200402
  2. LETROZOLE [Suspect]
     Active Substance: LETROZOLE
     Dosage: 2.5 MG, QD
     Route: 048
     Dates: start: 20200518
  3. KISQALI [Suspect]
     Active Substance: RIBOCICLIB
     Indication: Breast cancer metastatic
     Dosage: 600 MG (SCHEME 21 DAYS, 7 DAYS PAUSE)
     Route: 048
     Dates: start: 20200518, end: 20200603
  4. KISQALI [Suspect]
     Active Substance: RIBOCICLIB
     Dosage: 400 MG SCHEME 21 DAYS INTAKE, 7 DAYS PAUSE
     Route: 048
     Dates: start: 20201026, end: 20201104
  5. KISQALI [Suspect]
     Active Substance: RIBOCICLIB
     Dosage: 400 MG SCHEME 21 DAYS INTAKE, 7 DAYS PAUSE
     Route: 048
     Dates: start: 20200624, end: 20201012
  6. KISQALI [Suspect]
     Active Substance: RIBOCICLIB
     Dosage: 400 MG(SCHEME 21 DAYS INTAKE, 7 DAYS PAUSE)
     Route: 048
     Dates: start: 20201208, end: 20201229
  7. KISQALI [Suspect]
     Active Substance: RIBOCICLIB
     Dosage: 400 MG SCHEME 21 DAYS INTAKE, 7 DAYS PAUSE.
     Route: 048
     Dates: start: 20210119, end: 20210208
  8. KISQALI [Suspect]
     Active Substance: RIBOCICLIB
     Dosage: 400 MG SCHEME 21 DAYS INTAKE, 7 DAYS PAUSE
     Route: 048
     Dates: start: 20210223, end: 20210613
  9. KISQALI [Suspect]
     Active Substance: RIBOCICLIB
     Dosage: 200 MG (21 DAYS INTAKE, 7 DAYS PAUSE)
     Route: 048
     Dates: start: 20210614, end: 20210715
  10. KISQALI [Suspect]
     Active Substance: RIBOCICLIB
     Dosage: 400 MG SCHEME 21 DAYS INTAKE, 7 DAYS PAUSE.
     Route: 048
     Dates: start: 20210716, end: 20210801
  11. KISQALI [Suspect]
     Active Substance: RIBOCICLIB
     Dosage: 200 MG SCHEME 21 DAYS INTAKE, 7 DAYS PAUSE
     Route: 048
     Dates: start: 20210809, end: 20220102
  12. KISQALI [Suspect]
     Active Substance: RIBOCICLIB
     Dosage: 400 MG SCHEME 21 DAYS INTAKE, 7 DAYS PAUSE
     Route: 048
     Dates: start: 20220103, end: 20230914
  13. MCP [Concomitant]
     Active Substance: METOCLOPRAMIDE HYDROCHLORIDE
     Indication: Product used for unknown indication
     Dosage: UNK
     Route: 065

REACTIONS (18)
  - Radiation pneumonitis [Recovered/Resolved]
  - Muscle spasms [Not Recovered/Not Resolved]
  - Pharyngitis [Recovered/Resolved]
  - Dysphagia [Recovered/Resolved]
  - Nasopharyngitis [Recovered/Resolved]
  - Balance disorder [Not Recovered/Not Resolved]
  - Cystitis [Unknown]
  - Pruritus [Not Recovered/Not Resolved]
  - Dyspnoea [Not Recovered/Not Resolved]
  - Nausea [Not Recovered/Not Resolved]
  - Arthralgia [Not Recovered/Not Resolved]
  - Vulvovaginal dryness [Not Recovered/Not Resolved]
  - Anxiety disorder [Not Recovered/Not Resolved]
  - Dizziness [Recovered/Resolved]
  - Fatigue [Not Recovered/Not Resolved]
  - Dyspepsia [Not Recovered/Not Resolved]
  - Pain in extremity [Unknown]
  - Weight decreased [Unknown]

NARRATIVE: CASE EVENT DATE: 20200525
